FAERS Safety Report 4611806-8 (Version None)
Quarter: 2005Q1

REPORT INFORMATION
  Report Type: 
  Country: None (occurrence: None)
  Receive Date: 20050317
  Receipt Date: 20050301
  Transmission Date: 20050727
  Serious: Yes (Hospitalization)
  Sender: FDA-Public Use
  Company Number: FR-ABBOTT-05P-056-0292834-00

PATIENT

DRUGS (4)
  1. KALETRA [Suspect]
     Indication: DRUG EXPOSURE DURING PREGNANCY
  2. ZALCITABINE [Suspect]
     Indication: DRUG EXPOSURE DURING PREGNANCY
  3. TENOFOVIR [Suspect]
     Indication: DRUG EXPOSURE DURING PREGNANCY
  4. ZIDOVUDINE [Suspect]
     Indication: DRUG EXPOSURE DURING PREGNANCY

REACTIONS (3)
  - DEVELOPMENTAL DELAY [None]
  - DRUG EXPOSURE DURING PREGNANCY [None]
  - MENTAL RETARDATION SEVERITY UNSPECIFIED [None]
